FAERS Safety Report 9813425 (Version 1)
Quarter: 2014Q1

REPORT INFORMATION
  Report Type: Spontaneous
  Country: US (occurrence: None)
  Receive Date: 20140109
  Receipt Date: 20140109
  Transmission Date: 20141002
  Serious: Yes (Death)
  Sender: FDA-Public Use
  Company Number: None

PATIENT
  Age: 82 Year
  Sex: Male

DRUGS (1)
  1. NEXAVAR 200 MG BAYER [Suspect]
     Indication: NEOPLASM MALIGNANT
     Dosage: 200 MG  BID  PO
     Route: 048
     Dates: start: 20130122, end: 201312

REACTIONS (1)
  - Death [None]
